FAERS Safety Report 17612209 (Version 6)
Quarter: 2020Q3

REPORT INFORMATION
  Report Type: Spontaneous
  Country: US (occurrence: US)
  Receive Date: 20200401
  Receipt Date: 20200911
  Transmission Date: 20201102
  Serious: No
  Sender: FDA-Public Use
  Company Number: US-STRONGBRIDGE BIOPHARMA-2020-STR-000082

PATIENT
  Age: 58 Year
  Sex: Female

DRUGS (3)
  1. KEVEYIS [Suspect]
     Active Substance: DICHLORPHENAMIDE
     Dosage: 100 MG, BID
     Route: 048
  2. KEVEYIS [Suspect]
     Active Substance: DICHLORPHENAMIDE
     Indication: MYOTONIA
     Dosage: 50 MG, TID
     Route: 048
     Dates: start: 20181207
  3. KEVEYIS [Suspect]
     Active Substance: DICHLORPHENAMIDE
     Dosage: 75 MG, BID
     Route: 048

REACTIONS (21)
  - Muscle spasms [Unknown]
  - Drooling [Unknown]
  - Arthralgia [Unknown]
  - Wrong technique in product usage process [Unknown]
  - Fluid retention [Not Recovered/Not Resolved]
  - Muscle spasms [Unknown]
  - Dysgeusia [Unknown]
  - Muscular weakness [Unknown]
  - Inappropriate schedule of product administration [Unknown]
  - Musculoskeletal stiffness [Not Recovered/Not Resolved]
  - Memory impairment [Unknown]
  - Paraesthesia [Unknown]
  - Product dose omission issue [Unknown]
  - Musculoskeletal stiffness [Unknown]
  - Pain [Unknown]
  - Asthenia [Unknown]
  - Bladder disorder [Unknown]
  - Joint swelling [Unknown]
  - Disturbance in attention [Unknown]
  - Back pain [Unknown]
  - Pulmonary arterial hypertension [Unknown]

NARRATIVE: CASE EVENT DATE: 20200805
